FAERS Safety Report 17284916 (Version 3)
Quarter: 2020Q2

REPORT INFORMATION
  Report Type: Report from Study
  Country: CA (occurrence: CA)
  Receive Date: 20200117
  Receipt Date: 20200507
  Transmission Date: 20200713
  Serious: Yes (Life-Threatening, Hospitalization)
  Sender: FDA-Public Use
  Company Number: CA-ACTELION-A-NJ2019-194708

PATIENT
  Sex: Female
  Weight: 109.75 kg

DRUGS (17)
  1. TRACLEER [Suspect]
     Active Substance: BOSENTAN
     Indication: PULMONARY ARTERIAL HYPERTENSION
     Dosage: 62.5 MG
     Route: 048
     Dates: start: 20190801
  2. LYRICA [Concomitant]
     Active Substance: PREGABALIN
  3. TYLENOL [Concomitant]
     Active Substance: ACETAMINOPHEN
     Dosage: UNK
  4. WELLBUTRIN [Concomitant]
     Active Substance: BUPROPION HYDROCHLORIDE
  5. CELEBREX [Concomitant]
     Active Substance: CELECOXIB
  6. PILOCARPINE. [Concomitant]
     Active Substance: PILOCARPINE
  7. VITAMIN B12 [Concomitant]
     Active Substance: CYANOCOBALAMIN
  8. PANTOLOC [Concomitant]
     Active Substance: PANTOPRAZOLE SODIUM
  9. WARFARIN [Concomitant]
     Active Substance: WARFARIN
  10. TRACLEER [Suspect]
     Active Substance: BOSENTAN
     Dosage: 125 MG
     Route: 048
  11. FERROUS GLUCONATE [Concomitant]
     Active Substance: FERROUS GLUCONATE
  12. SULFATRIM [Concomitant]
     Active Substance: SULFAMETHOXAZOLE\TRIMETHOPRIM
  13. VITAMIN D [Concomitant]
     Active Substance: VITAMIN D NOS
  14. MYRBETRIQ [Concomitant]
     Active Substance: MIRABEGRON
  15. LASIX [Concomitant]
     Active Substance: FUROSEMIDE
  16. PROGESTERONE. [Concomitant]
     Active Substance: PROGESTERONE
  17. SYNTHROID [Concomitant]
     Active Substance: LEVOTHYROXINE SODIUM

REACTIONS (12)
  - Anaemia [Recovering/Resolving]
  - Red blood cell count abnormal [Recovering/Resolving]
  - Transfusion [Recovered/Resolved]
  - Haemoglobin decreased [Recovering/Resolving]
  - Internal haemorrhage [Unknown]
  - Peripheral swelling [Unknown]
  - Product dose omission [Unknown]
  - Memory impairment [Unknown]
  - Mobility decreased [Recovered/Resolved]
  - Pneumonia [Recovered/Resolved]
  - Hypotension [Unknown]
  - Systemic lupus erythematosus [Recovered/Resolved]
